FAERS Safety Report 23177856 (Version 1)
Quarter: 2023Q4

REPORT INFORMATION
  Report Type: Spontaneous
  Country: US (occurrence: US)
  Receive Date: 20231113
  Receipt Date: 20231113
  Transmission Date: 20240110
  Serious: No
  Sender: FDA-Public Use
  Company Number: US-SA-SAC20231108000833

PATIENT
  Age: 18 Year
  Sex: Female

DRUGS (2)
  1. DUPIXENT [Suspect]
     Active Substance: DUPILUMAB
     Indication: Eczema
     Dosage: INJECT 2 300MG SYRINGES DAY 1
     Route: 058
     Dates: start: 202011, end: 202011
  2. DUPIXENT [Suspect]
     Active Substance: DUPILUMAB
     Dosage: THEN 1, 300MG SYRINGE EVERY 2 WEEKS
     Route: 058

REACTIONS (4)
  - Rebound eczema [Recovered/Resolved]
  - Product dose omission issue [Unknown]
  - Erythema of eyelid [Recovered/Resolved]
  - Eyelid skin dryness [Recovered/Resolved]

NARRATIVE: CASE EVENT DATE: 20230101
